FAERS Safety Report 11431336 (Version 1)
Quarter: 2015Q3

REPORT INFORMATION
  Report Type: Spontaneous
  Country: PL (occurrence: PL)
  Receive Date: 20150828
  Receipt Date: 20150828
  Transmission Date: 20151125
  Serious: Yes (Death)
  Sender: FDA-Public Use
  Company Number: PL-TEVA-588973ISR

PATIENT
  Age: 64 Year
  Sex: Female
  Weight: 86 kg

DRUGS (2)
  1. CISPLATIN TEVA [Suspect]
     Active Substance: CISPLATIN
     Indication: LUNG NEOPLASM MALIGNANT
     Dosage: 60 MILLIGRAM DAILY;
     Route: 042
     Dates: start: 20150805, end: 20150807
  2. VEPESID [Suspect]
     Active Substance: ETOPOSIDE
     Indication: LUNG NEOPLASM MALIGNANT
     Dosage: 200 MILLIGRAM DAILY;
     Route: 042
     Dates: start: 20150805, end: 20150807

REACTIONS (4)
  - Respiratory failure [Fatal]
  - Lung neoplasm malignant [Fatal]
  - Pyrexia [Fatal]
  - Neutropenia [Fatal]

NARRATIVE: CASE EVENT DATE: 20150815
